FAERS Safety Report 10075054 (Version 1)
Quarter: 2014Q2

REPORT INFORMATION
  Report Type: Spontaneous
  Country: US (occurrence: US)
  Receive Date: 20140414
  Receipt Date: 20140414
  Transmission Date: 20141212
  Serious: No
  Sender: FDA-Public Use
  Company Number: US-BIOGENIDEC-2014BI029095

PATIENT
  Age: 56 Year
  Sex: Female

DRUGS (6)
  1. TECFIDERA [Suspect]
     Indication: MULTIPLE SCLEROSIS
     Route: 048
  2. AMBIEN [Concomitant]
  3. ESTRADIOL [Concomitant]
  4. LEVOTHYROXINE SODIUM [Concomitant]
  5. OXYBUTYNIN CHLORIDE [Concomitant]
  6. ZOLOFT [Concomitant]

REACTIONS (2)
  - Pain [Unknown]
  - Fatigue [Unknown]
